FAERS Safety Report 5777552-2 (Version None)
Quarter: 2008Q2

REPORT INFORMATION
  Report Type: 
  Country: None (occurrence: None)
  Receive Date: 20080618
  Receipt Date: 20080610
  Transmission Date: 20081010
  Serious: Yes (Other)
  Sender: FDA-Public Use
  Company Number: CN-BAXTER-2008BH006297

PATIENT
  Age: 36 Year
  Sex: Female

DRUGS (2)
  1. EXTRANEAL [Suspect]
     Indication: PERITONEAL DIALYSIS
     Dosage: DOSE UNIT:UNKNOWN
     Route: 033
     Dates: start: 20050501
  2. DIANEAL [Concomitant]
     Indication: PERITONEAL DIALYSIS

REACTIONS (1)
  - PERITONEAL DIALYSIS COMPLICATION [None]
